FAERS Safety Report 14851253 (Version 2)
Quarter: 2018Q2

REPORT INFORMATION
  Report Type: Report from Study
  Country: None (occurrence: US)
  Receive Date: 20180507
  Receipt Date: 20180524
  Transmission Date: 20180711
  Serious: Yes (Death)
  Sender: FDA-Public Use
  Company Number: US-ABBVIE-18K-163-2278749-00

PATIENT
  Age: 76 Year
  Sex: Male

DRUGS (1)
  1. DUOPA [Suspect]
     Active Substance: CARBIDOPA\LEVODOPA
     Indication: PRODUCT USED FOR UNKNOWN INDICATION
     Route: 050
     Dates: start: 201801, end: 201804

REACTIONS (14)
  - Parkinson^s disease [Unknown]
  - Constipation [Unknown]
  - Abdominal discomfort [Unknown]
  - Drug ineffective [Unknown]
  - Anxiety [Unknown]
  - Stoma site discharge [Not Recovered/Not Resolved]
  - Fungal infection [Not Recovered/Not Resolved]
  - Pollakiuria [Unknown]
  - Pyrexia [Unknown]
  - Muscle rigidity [Unknown]
  - Device occlusion [Recovered/Resolved]
  - Stoma site extravasation [Unknown]
  - Clostridium difficile infection [Fatal]
  - Vomiting [Unknown]

NARRATIVE: CASE EVENT DATE: 2018
